FAERS Safety Report 10988872 (Version 2)
Quarter: 2015Q2

REPORT INFORMATION
  Report Type: Spontaneous
  Country: US (occurrence: US)
  Receive Date: 20150405
  Receipt Date: 20150525
  Transmission Date: 20150821
  Serious: No
  Sender: FDA-Public Use
  Company Number: US-JNJFOC-20140115369

PATIENT

DRUGS (1)
  1. INFLIXIMAB, RECOMBINANT [Suspect]
     Active Substance: INFLIXIMAB
     Indication: UVEITIS
     Dosage: 4 TO 6 MG/KG GIVEN AS LOADING DOSES AT 0, 2 AND 6 WEEKS FOLLOWED BY ONCE EVERY 4 WEEKS
     Route: 042

REACTIONS (2)
  - Product use issue [Unknown]
  - Nausea [Unknown]
